FAERS Safety Report 23285753 (Version 1)
Quarter: 2023Q4

REPORT INFORMATION
  Report Type: Spontaneous
  Country: None (occurrence: US)
  Receive Date: 20231212
  Receipt Date: 20231212
  Transmission Date: 20240110
  Serious: Yes (Other)
  Sender: FDA-Public Use
  Company Number: US-Harrow Eye-2149215

PATIENT
  Sex: Female

DRUGS (8)
  1. AZITHROMYCIN [Suspect]
     Active Substance: AZITHROMYCIN
     Indication: Mycobacterium avium complex infection
  2. AZITHROMYCIN [Suspect]
     Active Substance: AZITHROMYCIN
  3. AZITHROMYCIN [Suspect]
     Active Substance: AZITHROMYCIN
  4. MOXIFLOXACIN [Suspect]
     Active Substance: MOXIFLOXACIN
  5. LEVOFLOXACIN [Suspect]
     Active Substance: LEVOFLOXACIN
  6. ETHAMBUTOL [Suspect]
     Active Substance: ETHAMBUTOL HYDROCHLORIDE
  7. ETHAMBUTOL [Suspect]
     Active Substance: ETHAMBUTOL HYDROCHLORIDE
  8. DUONEB [Concomitant]
     Active Substance: ALBUTEROL SULFATE\IPRATROPIUM BROMIDE

REACTIONS (5)
  - Mycobacterium avium complex infection [Unknown]
  - Asthma-chronic obstructive pulmonary disease overlap syndrome [Unknown]
  - Pulmonary mass [Unknown]
  - Drug resistance [Unknown]
  - Drug effect less than expected [Unknown]
